FAERS Safety Report 17229941 (Version 1)
Quarter: 2019Q4

REPORT INFORMATION
  Report Type: Spontaneous
  Country: US (occurrence: US)
  Receive Date: 20191211
  Receipt Date: 20191211
  Transmission Date: 20200122
  Serious: No
  Sender: FDA-Public Use
  Company Number: None

PATIENT
  Sex: Female

DRUGS (2)
  1. TEMOZOLOMIDE 5MG SANDOZ [Suspect]
     Active Substance: TEMOZOLOMIDE
     Indication: BRAIN NEOPLASM MALIGNANT
     Dosage: DAILY NIGHTTIME
     Route: 048
     Dates: start: 20191108
  2. TEMOZOLOMIDE 20MG SANDOZ [Suspect]
     Active Substance: TEMOZOLOMIDE
     Indication: BRAIN NEOPLASM MALIGNANT
     Dosage: DAILY NIGHTTIME
     Route: 048
     Dates: start: 20191108

REACTIONS (3)
  - Dry skin [None]
  - Rash [None]
  - Urticaria [None]
